FAERS Safety Report 20521575 (Version 1)
Quarter: 2022Q1

REPORT INFORMATION
  Report Type: Spontaneous
  Country: US (occurrence: US)
  Receive Date: 20220226
  Receipt Date: 20220226
  Transmission Date: 20220424
  Serious: No
  Sender: FDA-Public Use
  Company Number: US-AMNEAL PHARMACEUTICALS-2021-AMRX-00283

PATIENT
  Age: 70 Year
  Sex: Female
  Weight: 48 kg

DRUGS (4)
  1. EMVERM [Suspect]
     Active Substance: MEBENDAZOLE
     Indication: Nematodiasis
     Dosage: 1 TABLET SINGLE (FIRST DOSE)
     Route: 048
     Dates: start: 20201202, end: 20201202
  2. EMVERM [Suspect]
     Active Substance: MEBENDAZOLE
     Indication: Infection parasitic
     Dosage: 1 TABLET SINGLE (SECOND DOSE)
     Route: 048
     Dates: start: 20210122, end: 20210122
  3. EMVERM [Suspect]
     Active Substance: MEBENDAZOLE
     Dosage: 1 TABLET SINGLE (THIRD DOSE)
     Route: 048
     Dates: start: 20210129, end: 20210129
  4. EMVERM [Suspect]
     Active Substance: MEBENDAZOLE
     Dosage: 1 TABLETS, SINGLE
     Route: 048
     Dates: start: 20210201, end: 20210201

REACTIONS (3)
  - Weight fluctuation [Recovering/Resolving]
  - Infection [Recovering/Resolving]
  - Inappropriate schedule of product administration [Unknown]

NARRATIVE: CASE EVENT DATE: 20201201
